FAERS Safety Report 4970830-6 (Version None)
Quarter: 2006Q2

REPORT INFORMATION
  Report Type: 
  Country: None (occurrence: None)
  Receive Date: 20060406
  Receipt Date: 20060320
  Transmission Date: 20061013
  Serious: Yes (Hospitalization)
  Sender: FDA-Public Use
  Company Number: US200603005278

PATIENT
  Age: 34 Year
  Sex: Female
  Weight: 66.7 kg

DRUGS (2)
  1. F1J-MC-HMEF DULOXETINE 60/120MG VS PLB (DULOXETINE HYDROCHLORIDE) CAPS [Suspect]
     Indication: FIBROMYALGIA
     Dosage: ORAL
     Route: 048
  2. SYNTHROID [Concomitant]

REACTIONS (3)
  - ABASIA [None]
  - DYSSTASIA [None]
  - SENSORY DISTURBANCE [None]
